FAERS Safety Report 13793080 (Version 8)
Quarter: 2017Q4

REPORT INFORMATION
  Report Type: Spontaneous
  Country: CA (occurrence: CA)
  Receive Date: 20170726
  Receipt Date: 20171127
  Transmission Date: 20180320
  Serious: Yes (Other)
  Sender: FDA-Public Use
  Company Number: CA-HIKMA PHARMACEUTICALS CO. LTD-2017CA009692

PATIENT

DRUGS (1)
  1. INFLECTRA [Suspect]
     Active Substance: INFLIXIMAB-DYYB
     Indication: CROHN^S DISEASE
     Dosage: 300 MG, CYCLIC (EVERY0, 2,6 WEEKS, THEN EVERY 8 WEEKS)
     Route: 042
     Dates: start: 20170703

REACTIONS (6)
  - Animal scratch [Not Recovered/Not Resolved]
  - Chills [Unknown]
  - Subcutaneous abscess [Not Recovered/Not Resolved]
  - Heart rate increased [Unknown]
  - Gastrointestinal disorder [Unknown]
  - Infected cyst [Not Recovered/Not Resolved]
